FAERS Safety Report 13792049 (Version 1)
Quarter: 2017Q3

REPORT INFORMATION
  Report Type: Spontaneous
  Country: US (occurrence: US)
  Receive Date: 20170725
  Receipt Date: 20170725
  Transmission Date: 20171127
  Serious: No
  Sender: FDA-Public Use
  Company Number: US-ROCHE-714686

PATIENT
  Age: 83 Year
  Sex: Female

DRUGS (1)
  1. TICLID [Suspect]
     Active Substance: TICLOPIDINE HYDROCHLORIDE
     Indication: CEREBROVASCULAR ACCIDENT
     Route: 065

REACTIONS (1)
  - Epistaxis [Unknown]
